FAERS Safety Report 7325288-9 (Version None)
Quarter: 2011Q1

REPORT INFORMATION
  Report Type: 
  Country: None (occurrence: None)
  Receive Date: 20110302
  Receipt Date: 20110224
  Transmission Date: 20110831
  Serious: Yes (Life-Threatening, Hospitalization, Disabling)
  Sender: FDA-Public Use
  Company Number: GB-SHIRE-SPV1-2011-00324

PATIENT
  Age: 16 Year
  Sex: Male
  Weight: 39.8 kg

DRUGS (4)
  1. AZATHIOPRINE SODIUM [Suspect]
     Indication: CROHN'S DISEASE
  2. PARACETAMOL [Concomitant]
     Indication: PRODUCT USED FOR UNKNOWN INDICATION
  3. MEZAVANT XL [Suspect]
     Indication: CROHN'S DISEASE
     Route: 048
  4. HUMIRA [Suspect]
     Indication: CROHN'S DISEASE

REACTIONS (2)
  - TESTICULAR GERM CELL CANCER [None]
  - OFF LABEL USE [None]
